FAERS Safety Report 4931044-9 (Version None)
Quarter: 2006Q1

REPORT INFORMATION
  Report Type: 
  Country: None (occurrence: None)
  Receive Date: 20060227
  Receipt Date: 20060213
  Transmission Date: 20060701
  Serious: Yes (Death)
  Sender: FDA-Public Use
  Company Number: RENA-11670

PATIENT
  Age: 72 Year
  Sex: Female
  Weight: 50 kg

DRUGS (16)
  1. RENAGEL [Suspect]
     Indication: HYPERPHOSPHATAEMIA
     Dosage: 1 G TID PO
     Route: 048
     Dates: start: 20051115, end: 20051207
  2. RENAGEL [Suspect]
     Indication: HYPERPHOSPHATAEMIA
     Dosage: 1 G TID PO
     Route: 048
     Dates: start: 20040801, end: 20051110
  3. RISUMIC [Concomitant]
  4. METLIGINE [Concomitant]
  5. LANSOPRAZOLE [Concomitant]
  6. RENAGEL [Suspect]
     Indication: HYPERPHOSPHATAEMIA
     Dosage: 0.5 G TID PO
     Route: 048
     Dates: start: 20040201, end: 20040801
  7. GASMOTIN (MOSAPRIDE CITRATE) [Concomitant]
  8. LANIRAPID [Concomitant]
  9. FULSTAN [Concomitant]
  10. SOLETON [Concomitant]
  11. MUCOSTA [Concomitant]
  12. CRAVIT [Concomitant]
  13. BIOFERMIN R [Concomitant]
  14. WARFARIN SODIUM [Concomitant]
  15. ACETAMINOPHEN [Concomitant]
  16. PANTETHINE [Concomitant]

REACTIONS (23)
  - ABDOMINAL PAIN [None]
  - BLOOD PRESSURE DECREASED [None]
  - CARDIAC FAILURE [None]
  - DIARRHOEA HAEMORRHAGIC [None]
  - DISEASE PROGRESSION [None]
  - EATING DISORDER [None]
  - ENTERITIS [None]
  - FINGER AMPUTATION [None]
  - GASTROINTESTINAL EROSION [None]
  - GASTROINTESTINAL NECROSIS [None]
  - GASTROINTESTINAL PERFORATION [None]
  - HEPATIC FAILURE [None]
  - INTESTINAL ISCHAEMIA [None]
  - INTESTINAL OBSTRUCTION [None]
  - INTESTINAL PERFORATION [None]
  - LEG AMPUTATION [None]
  - NAUSEA [None]
  - NECROSIS [None]
  - POST PROCEDURAL COMPLICATION [None]
  - RESPIRATORY DISORDER [None]
  - SEPSIS [None]
  - TOE AMPUTATION [None]
  - VOMITING [None]
